FAERS Safety Report 20918596 (Version 1)
Quarter: 2022Q2

REPORT INFORMATION
  Report Type: Spontaneous
  Country: US (occurrence: None)
  Receive Date: 20220603
  Receipt Date: 20220603
  Transmission Date: 20220720
  Serious: No
  Sender: FDA-Public Use
  Company Number: None

PATIENT
  Age: 75 Year
  Sex: Female
  Weight: 50.4 kg

DRUGS (15)
  1. PAXLOVID [Suspect]
     Active Substance: NIRMATRELVIR\RITONAVIR
     Indication: COVID-19
     Dates: start: 20220514, end: 20220514
  2. REMICADE [Concomitant]
     Active Substance: INFLIXIMAB
  3. METOPROLOL [Concomitant]
  4. LOSARTAN [Concomitant]
     Active Substance: LOSARTAN
  5. SYNTHROID [Concomitant]
     Active Substance: LEVOTHYROXINE SODIUM
  6. DULAOXETINE [Concomitant]
  7. SPIRONOLACTONE [Concomitant]
  8. ELIQUIS [Concomitant]
     Active Substance: APIXABAN
  9. ROSUVASTATIM [Concomitant]
  10. FERROUS SULFATE [Concomitant]
  11. VITAMIN C [Concomitant]
     Active Substance: ASCORBIC ACID
  12. ZINC [Concomitant]
     Active Substance: ZINC
  13. MULTIVITAMIN [Concomitant]
  14. VITAMIN D3 [Concomitant]
     Active Substance: CHOLECALCIFEROL
  15. ACETAMINOPHEN [Concomitant]
     Active Substance: ACETAMINOPHEN

REACTIONS (2)
  - COVID-19 [None]
  - Pyrexia [None]

NARRATIVE: CASE EVENT DATE: 20220525
